FAERS Safety Report 14919048 (Version 1)
Quarter: 2018Q2

REPORT INFORMATION
  Report Type: Spontaneous
  Country: CL (occurrence: CL)
  Receive Date: 20180521
  Receipt Date: 20180521
  Transmission Date: 20180711
  Serious: Yes (Hospitalization)
  Sender: FDA-Public Use
  Company Number: CL-PFIZER INC-2018200604

PATIENT
  Age: 46 Year
  Sex: Female

DRUGS (1)
  1. DEPO-PRODASONE [Suspect]
     Active Substance: MEDROXYPROGESTERONE ACETATE
     Indication: MENORRHAGIA
     Dosage: 1 DF, UNK
     Dates: start: 20180414

REACTIONS (2)
  - Anaemia [Unknown]
  - Product use in unapproved indication [Unknown]

NARRATIVE: CASE EVENT DATE: 20180414
